FAERS Safety Report 8559752-1 (Version None)
Quarter: 2012Q3

REPORT INFORMATION
  Report Type: 
  Country: None (occurrence: None)
  Receive Date: 20120802
  Receipt Date: 20120801
  Transmission Date: 20120928
  Serious: Yes (Other)
  Sender: FDA-Public Use
  Company Number: SE-BAYER-2012-077008

PATIENT
  Age: 39 Year
  Sex: Female

DRUGS (2)
  1. ESTRADIOL VALERATE/DIENOGEST [Suspect]
     Dosage: UNK
     Route: 048
     Dates: start: 20120201, end: 20120101
  2. LAMICTAL [Interacting]
     Indication: EPILEPSY
     Dosage: UNK
     Dates: start: 20010101

REACTIONS (1)
  - EPILEPSY [None]
